FAERS Safety Report 25605495 (Version 1)
Quarter: 2025Q3

REPORT INFORMATION
  Report Type: Report from Study
  Country: EU (occurrence: EU)
  Receive Date: 20250725
  Receipt Date: 20250725
  Transmission Date: 20251020
  Serious: Yes (Other)
  Sender: MYLAN
  Company Number: EU-MYLANLABS-2025M1061719

PATIENT
  Sex: Female

DRUGS (4)
  1. GLATIRAMER [Suspect]
     Active Substance: GLATIRAMER
     Indication: Multiple sclerosis
  2. GLATIRAMER [Suspect]
     Active Substance: GLATIRAMER
     Route: 058
  3. GLATIRAMER [Suspect]
     Active Substance: GLATIRAMER
     Route: 058
  4. GLATIRAMER [Suspect]
     Active Substance: GLATIRAMER

REACTIONS (4)
  - Seizure [Unknown]
  - Burning sensation [Unknown]
  - Hypersensitivity [Unknown]
  - Erythema [Unknown]

NARRATIVE: CASE EVENT DATE: 20250716
